FAERS Safety Report 7094783-2 (Version None)
Quarter: 2010Q4

REPORT INFORMATION
  Report Type: 
  Country: None (occurrence: None)
  Receive Date: 20101110
  Receipt Date: 20101102
  Transmission Date: 20110411
  Serious: Yes (Hospitalization, Other)
  Sender: FDA-Public Use
  Company Number: NL-MERCK-1011NLD00001

PATIENT
  Age: 60 Year
  Sex: Male

DRUGS (5)
  1. ZOCOR [Suspect]
     Route: 048
  2. ERYTHROMYCIN STEARATE [Suspect]
     Route: 051
  3. SULFAMETHOXAZOLE AND TRIMETHOPRIM [Concomitant]
     Indication: PNEUMONIA
     Route: 041
  4. AMOXICILLIN AND CLAVULANATE POTASSIUM [Concomitant]
     Indication: PNEUMONIA
     Route: 065
  5. CIPROFLOXACIN [Concomitant]
     Indication: PNEUMONIA
     Route: 065

REACTIONS (2)
  - DRUG INTERACTION [None]
  - RHABDOMYOLYSIS [None]
